FAERS Safety Report 8314327-4 (Version None)
Quarter: 2012Q2

REPORT INFORMATION
  Report Type: 
  Country: None (occurrence: None)
  Receive Date: 20120426
  Receipt Date: 20120412
  Transmission Date: 20120825
  Serious: Yes (Hospitalization)
  Sender: FDA-Public Use
  Company Number: BR-ROCHE-1008785

PATIENT
  Sex: Male

DRUGS (6)
  1. DIURETIC NOS [Suspect]
     Indication: DYSURIA
  2. DIURETIC NOS [Suspect]
     Indication: SWELLING
  3. ALCOHOL [Suspect]
     Indication: PRODUCT USED FOR UNKNOWN INDICATION
     Dates: start: 20111028, end: 20111028
  4. CORTISONE [Suspect]
     Indication: PRODUCT USED FOR UNKNOWN INDICATION
  5. CLONAZEPAM [Suspect]
     Dosage: INDICATION: TO SLEEP
     Route: 065
  6. POTASSIUM CHLORIDE [Suspect]
     Indication: PRODUCT USED FOR UNKNOWN INDICATION

REACTIONS (10)
  - GASTROINTESTINAL DISORDER [None]
  - ALCOHOL INTERACTION [None]
  - HYPOKALAEMIA [None]
  - STRESS [None]
  - CARDIAC ARREST [None]
  - MALAISE [None]
  - ARRHYTHMIA [None]
  - SWELLING [None]
  - GASTRIC DISORDER [None]
  - ALCOHOL POISONING [None]
